FAERS Safety Report 7016732-5 (Version None)
Quarter: 2010Q3

REPORT INFORMATION
  Report Type: 
  Country: None (occurrence: None)
  Receive Date: 20100909
  Receipt Date: 20100428
  Transmission Date: 20110219
  Serious: Yes (Hospitalization)
  Sender: FDA-Public Use
  Company Number: 2010SP024565

PATIENT
  Age: 21 Year
  Sex: Male

DRUGS (5)
  1. SAPHRIS [Suspect]
     Indication: DELUSION
     Dosage: 10 MG ; HS ; PO
     Route: 048
     Dates: start: 20100419, end: 20100421
  2. SAPHRIS [Suspect]
     Indication: HALLUCINATION
     Dosage: 10 MG ; HS ; PO
     Route: 048
     Dates: start: 20100419, end: 20100421
  3. HALDOL [Concomitant]
  4. COGENTIN [Concomitant]
  5. ABILIFY [Concomitant]

REACTIONS (4)
  - HYPERTENSION [None]
  - INAPPROPRIATE SCHEDULE OF DRUG ADMINISTRATION [None]
  - INCORRECT ROUTE OF DRUG ADMINISTRATION [None]
  - PALPITATIONS [None]
